FAERS Safety Report 9478498 (Version 1)
Quarter: 2013Q3

REPORT INFORMATION
  Report Type: Spontaneous
  Country: SG (occurrence: SG)
  Receive Date: 20130827
  Receipt Date: 20130827
  Transmission Date: 20140515
  Serious: Yes (Other)
  Sender: FDA-Public Use
  Company Number: SG-ABBOTT-13P-141-1135534-00

PATIENT
  Age: 56 Year
  Sex: Female
  Weight: 70 kg

DRUGS (17)
  1. TRACRIUM [Suspect]
     Indication: COLECTOMY TOTAL
  2. TRACRIUM [Suspect]
     Indication: INTESTINAL ANASTOMOSIS
  3. MIDAZOLAM [Concomitant]
     Indication: PRODUCT USED FOR UNKNOWN INDICATION
  4. EPHEDRINE [Concomitant]
     Indication: PRODUCT USED FOR UNKNOWN INDICATION
  5. PHENYLEPHRINE [Concomitant]
     Indication: PRODUCT USED FOR UNKNOWN INDICATION
  6. CEFTRIAXONE [Concomitant]
     Indication: PRODUCT USED FOR UNKNOWN INDICATION
  7. DYNASTAT [Concomitant]
     Indication: PRODUCT USED FOR UNKNOWN INDICATION
  8. FLAGYL [Concomitant]
     Indication: PRODUCT USED FOR UNKNOWN INDICATION
  9. FLAGYL [Concomitant]
  10. OXYNORM [Concomitant]
     Indication: PRODUCT USED FOR UNKNOWN INDICATION
  11. OXYNORM [Concomitant]
  12. ALOXI [Concomitant]
     Indication: PRODUCT USED FOR UNKNOWN INDICATION
  13. ALOXI [Concomitant]
  14. LACTATED RINGERS [Concomitant]
     Indication: PRODUCT USED FOR UNKNOWN INDICATION
  15. LACTATED RINGERS [Concomitant]
  16. ALBUMIN [Concomitant]
     Indication: PRODUCT USED FOR UNKNOWN INDICATION
  17. ALBUMIN [Concomitant]

REACTIONS (1)
  - Drug ineffective [Recovered/Resolved]
